FAERS Safety Report 11087638 (Version 1)
Quarter: 2015Q2

REPORT INFORMATION
  Report Type: Spontaneous
  Country: CA (occurrence: None)
  Receive Date: 20150430
  Receipt Date: 20150430
  Transmission Date: 20150821
  Serious: Yes (Hospitalization)
  Sender: FDA-Public Use
  Company Number: 2836972

PATIENT
  Age: 60 Year
  Sex: Female

DRUGS (5)
  1. (METHOTREXATE) [Concomitant]
     Active Substance: METHOTREXATE
  2. (LISINOPRIL/HYDROCHLOROTHIAZIDE) [Concomitant]
  3. (FOLIC ACID) [Concomitant]
  4. (VALPROIC ACID) [Concomitant]
  5. ZOLEDRONIC ACID [Suspect]
     Active Substance: ZOLEDRONIC ACID
     Indication: OSTEOPOROSIS

REACTIONS (1)
  - Sensory loss [None]
